FAERS Safety Report 7414113-3 (Version None)
Quarter: 2011Q2

REPORT INFORMATION
  Report Type: 
  Country: None (occurrence: None)
  Receive Date: 20110411
  Receipt Date: 20110411
  Transmission Date: 20111010
  Serious: Yes (Hospitalization)
  Sender: FDA-Public Use
  Company Number: None

PATIENT
  Age: 49 Year
  Sex: Female
  Weight: 91.173 kg

DRUGS (1)
  1. ADVAIR DISKUS 500/50 [Suspect]
     Indication: ASTHMA
     Dosage: 500/50 2 TIMES A DAY PO
     Route: 048

REACTIONS (5)
  - TREATMENT NONCOMPLIANCE [None]
  - ECONOMIC PROBLEM [None]
  - MYALGIA [None]
  - DRUG DOSE OMISSION [None]
  - COLLAPSE OF LUNG [None]
